FAERS Safety Report 24888004 (Version 1)
Quarter: 2025Q1

REPORT INFORMATION
  Report Type: Spontaneous
  Country: JP (occurrence: JP)
  Receive Date: 20250127
  Receipt Date: 20250127
  Transmission Date: 20250409
  Serious: Yes (Hospitalization)
  Sender: Haleon PLC
  Company Number: JP-HALEON-2224308

PATIENT
  Age: 81 Year
  Sex: Female
  Weight: 42.2 kg

DRUGS (1)
  1. FLUTICASONE PROPIONATE [Suspect]
     Active Substance: FLUTICASONE PROPIONATE
     Indication: Laryngeal granuloma
     Route: 055

REACTIONS (2)
  - Hyperaemia [Recovered/Resolved]
  - Condition aggravated [Recovered/Resolved]
